FAERS Safety Report 6309249-4 (Version None)
Quarter: 2009Q3

REPORT INFORMATION
  Report Type: 
  Country: None (occurrence: None)
  Receive Date: 20090814
  Receipt Date: 20070702
  Transmission Date: 20100115
  Serious: Yes (Other)
  Sender: FDA-Public Use
  Company Number: US-ASTRAZENECA-2006UW24143

PATIENT
  Age: 50 Year
  Sex: Male
  Weight: 86.2 kg

DRUGS (14)
  1. SEROQUEL [Suspect]
     Indication: SLEEP DISORDER
     Dosage: 50-375 MG PER DAY, 25-150 MG
     Route: 048
     Dates: start: 20011012
  2. SEROQUEL [Suspect]
     Indication: AFFECTIVE DISORDER
     Dosage: 50-375 MG PER DAY, 25-150 MG
     Route: 048
     Dates: start: 20011012
  3. SEROQUEL [Suspect]
     Indication: IRRITABILITY
     Dosage: 50-375 MG PER DAY, 25-150 MG
     Route: 048
     Dates: start: 20011012
  4. RISPERDAL [Concomitant]
     Dates: start: 20060101
  5. OLANZAPINE [Concomitant]
  6. LITHIUM [Concomitant]
     Dosage: 6 TABLETS PER DAY
     Dates: start: 20010521
  7. DEPAKOTE [Concomitant]
  8. GLUCOPHAGE [Concomitant]
     Dates: start: 20010521
  9. RITALIN [Concomitant]
     Indication: ATTENTION DEFICIT/HYPERACTIVITY DISORDER
     Dates: start: 20011012
  10. ASPIRIN [Concomitant]
     Route: 048
     Dates: start: 20021230
  11. AMARYL [Concomitant]
     Dosage: 2-4 MG, Q AM
     Route: 048
     Dates: start: 20021230
  12. ZOLOFT [Concomitant]
     Dates: start: 20021230
  13. VASOTEC [Concomitant]
     Route: 048
     Dates: start: 20021230
  14. NEURONTIN [Concomitant]
     Dates: start: 20021230

REACTIONS (5)
  - CHOLELITHIASIS [None]
  - DIABETES MELLITUS [None]
  - GALLBLADDER OPERATION [None]
  - PANCREATITIS [None]
  - TARDIVE DYSKINESIA [None]
